FAERS Safety Report 24904097 (Version 2)
Quarter: 2025Q1

REPORT INFORMATION
  Report Type: Report from Study
  Country: US (occurrence: US)
  Receive Date: 20250130
  Receipt Date: 20250220
  Transmission Date: 20250409
  Serious: No
  Sender: BRISTOL-MYERS SQUIBB COMPANY
  Company Number: US-BRISTOL-MYERS SQUIBB COMPANY-2025-014449

PATIENT
  Age: 67 Year
  Sex: Male
  Weight: 106.59 kg

DRUGS (1)
  1. CAMZYOS [Suspect]
     Active Substance: MAVACAMTEN
     Indication: Hypertrophic cardiomyopathy
     Dosage: EVERY EVENING
     Route: 048
     Dates: start: 20250123

REACTIONS (2)
  - Nasopharyngitis [Unknown]
  - Chest discomfort [Not Recovered/Not Resolved]
